FAERS Safety Report 5403104-X (Version None)
Quarter: 2007Q3

REPORT INFORMATION
  Report Type: 
  Country: None (occurrence: None)
  Receive Date: 20070801
  Receipt Date: 20070719
  Transmission Date: 20080115
  Serious: Yes (Hospitalization)
  Sender: FDA-Public Use
  Company Number: CA-SHR-CA-2007-026986

PATIENT
  Age: 56 Year
  Sex: Female
  Weight: 75 kg

DRUGS (7)
  1. BETASERON [Suspect]
     Indication: RELAPSING-REMITTING MULTIPLE SCLEROSIS
     Dosage: 8 MIU, EVERY 2D
     Route: 058
     Dates: start: 20000215
  2. BACLOFEN [Concomitant]
     Route: 048
  3. HORMONES AND RELATED AGENTS [Concomitant]
     Indication: HORMONE REPLACEMENT THERAPY
     Route: 048
  4. LORAZEPAM [Concomitant]
     Indication: SEDATIVE THERAPY
     Route: 048
  5. NITROFURANTOIN [Concomitant]
     Indication: PROPHYLAXIS URINARY TRACT INFECTION
     Route: 048
  6. TYLENOL (CAPLET) [Concomitant]
     Indication: ANTIINFLAMMATORY THERAPY
     Route: 048
  7. AMITRIPTYLINE HCL [Concomitant]
     Indication: ANTIDEPRESSANT THERAPY
     Route: 048

REACTIONS (4)
  - FALL [None]
  - FEELING COLD [None]
  - FEELING HOT [None]
  - MOVEMENT DISORDER [None]
